FAERS Safety Report 9695106 (Version 1)
Quarter: 2013Q4

REPORT INFORMATION
  Report Type: Report from Study
  Country: US (occurrence: US)
  Receive Date: 20131119
  Receipt Date: 20131119
  Transmission Date: 20140711
  Serious: Yes (Other)
  Sender: FDA-Public Use
  Company Number: PHEH2013US024096

PATIENT
  Age: 79 Year
  Sex: Female

DRUGS (2)
  1. GLEEVEC [Suspect]
     Indication: BREAST CANCER
     Dosage: 400 MG, QD
     Route: 048
  2. GLEEVEC [Suspect]
     Indication: OFF LABEL USE

REACTIONS (1)
  - Hepatic lesion [Unknown]
